FAERS Safety Report 7774201-9 (Version None)
Quarter: 2011Q3

REPORT INFORMATION
  Report Type: 
  Country: None (occurrence: None)
  Receive Date: 20110921
  Receipt Date: 20110912
  Transmission Date: 20111222
  Serious: Yes (Other)
  Sender: FDA-Public Use
  Company Number: 1043601

PATIENT

DRUGS (1)
  1. MIDAZOLAM HCL [Suspect]
     Indication: STATUS EPILEPTICUS
     Dosage: INTRAVENOUS DRIP
     Route: 041

REACTIONS (1)
  - TONIC CONVULSION [None]
